FAERS Safety Report 8670975 (Version 3)
Quarter: 2012Q4

REPORT INFORMATION
  Report Type: 
  Country: US (occurrence: US)
  Receive Date: 20120718
  Receipt Date: 20120928
  Transmission Date: 20130627
  Serious: Yes (Death, Life-Threatening)
  Sender: FDA-Public Use
  Company Number: US-BRACCO-008298

PATIENT
  Age: 88 Year
  Sex: Female
  Weight: 70 kg

DRUGS (16)
  1. ISOVUE 370 [Suspect]
     Indication: COMPUTERISED TOMOGRAM
     Dosage: left arm (site of administration)
     Route: 042
     Dates: start: 20120706, end: 20120706
  2. ISOVUE 370 [Suspect]
     Indication: PARANEOPLASTIC SYNDROME
     Dosage: left arm (site of administration)
     Route: 042
     Dates: start: 20120706, end: 20120706
  3. LOPID [Concomitant]
  4. IRON [Concomitant]
  5. COREG [Concomitant]
  6. SYNTHROID [Concomitant]
  7. GLUCOPHAGE [Concomitant]
  8. HYDRALAZINE [Concomitant]
  9. SLOW-MAG [Concomitant]
  10. POTASSIUM CHLORIDE [Concomitant]
  11. VITAMIN B12 NOS [Concomitant]
  12. LASIX [Concomitant]
  13. CYMBALTA [Concomitant]
  14. ZOCOR [Concomitant]
  15. ASPIRIN [Concomitant]
  16. CALCIUM WITH VITAMIN D [Concomitant]

REACTIONS (2)
  - Cardio-respiratory arrest [Fatal]
  - Pulmonary embolism [Fatal]
